FAERS Safety Report 4647466-X (Version None)
Quarter: 2005Q2

REPORT INFORMATION
  Report Type: 
  Country: None (occurrence: None)
  Receive Date: 20050426
  Receipt Date: 20050412
  Transmission Date: 20051028
  Serious: Yes (Other)
  Sender: FDA-Public Use
  Company Number: 2005059961

PATIENT
  Age: 48 Year
  Sex: Male

DRUGS (2)
  1. GEODON [Suspect]
     Indication: ILL-DEFINED DISORDER
  2. VALPROATE SODIUM [Suspect]
     Indication: ILL-DEFINED DISORDER

REACTIONS (3)
  - BRAIN DAMAGE [None]
  - IMPAIRED WORK ABILITY [None]
  - ROAD TRAFFIC ACCIDENT [None]
